FAERS Safety Report 13576196 (Version 3)
Quarter: 2018Q2

REPORT INFORMATION
  Report Type: Report from Study
  Country: US (occurrence: US)
  Receive Date: 20170524
  Receipt Date: 20180622
  Transmission Date: 20180711
  Serious: Yes (Hospitalization)
  Sender: FDA-Public Use
  Company Number: US-ACTELION-A-US2017-148681

PATIENT
  Age: 50 Year
  Sex: Female
  Weight: 63.95 kg

DRUGS (5)
  1. UPTRAVI [Concomitant]
     Active Substance: SELEXIPAG
     Route: 048
  2. ADCIRCA [Concomitant]
     Active Substance: TADALAFIL
  3. TRACLEER [Suspect]
     Active Substance: BOSENTAN
     Dosage: UNK
     Route: 048
  4. TRACLEER [Suspect]
     Active Substance: BOSENTAN
     Indication: PULMONARY ARTERIAL HYPERTENSION
     Dosage: 125 MG, BID
     Route: 048
     Dates: start: 20141120
  5. REMODULIN [Concomitant]
     Active Substance: TREPROSTINIL

REACTIONS (10)
  - Sepsis [Unknown]
  - Confusional state [Unknown]
  - Clostridium difficile infection [Unknown]
  - Gastroenteritis Escherichia coli [Unknown]
  - Feeling abnormal [Unknown]
  - Dyspnoea [Unknown]
  - Throat irritation [Unknown]
  - Amnesia [Unknown]
  - Fatigue [Unknown]
  - Hospitalisation [Unknown]
